FAERS Safety Report 21328651 (Version 1)
Quarter: 2022Q3

REPORT INFORMATION
  Report Type: Spontaneous
  Country: US (occurrence: US)
  Receive Date: 20220913
  Receipt Date: 20220913
  Transmission Date: 20221027
  Serious: Yes (Other)
  Sender: FDA-Public Use
  Company Number: US-RECORDATI RARE DISEASE INC-2022004110

PATIENT
  Age: 32 Year
  Sex: Male

DRUGS (2)
  1. PANHEMATIN [Suspect]
     Active Substance: HEMIN
     Indication: Porphyria acute
     Dosage: 3 MILLIGRAM, QW
     Route: 065
  2. PANHEMATIN [Suspect]
     Active Substance: HEMIN
     Indication: Prophylaxis

REACTIONS (2)
  - Hepatic cirrhosis [Recovered/Resolved]
  - Off label use [Unknown]
